FAERS Safety Report 7265371-X (Version None)
Quarter: 2011Q1

REPORT INFORMATION
  Report Type: 
  Country: None (occurrence: None)
  Receive Date: 20110131
  Receipt Date: 20110124
  Transmission Date: 20110831
  Serious: Yes (Other)
  Sender: FDA-Public Use
  Company Number: JP-ROCHE-717171

PATIENT
  Sex: Male
  Weight: 54.6 kg

DRUGS (20)
  1. PREDONINE [Suspect]
     Indication: CASTLEMAN'S DISEASE
     Route: 048
     Dates: start: 20100216, end: 20100228
  2. PREDONINE [Suspect]
     Route: 048
     Dates: start: 20100301, end: 20100311
  3. PREDONINE [Suspect]
     Route: 048
     Dates: start: 20100413, end: 20100415
  4. TOCILIZUMAB [Suspect]
     Indication: CASTLEMAN'S DISEASE
     Route: 041
     Dates: start: 20100520, end: 20100701
  5. TOCILIZUMAB [Suspect]
     Route: 041
     Dates: start: 20100804, end: 20100812
  6. PREDONINE [Suspect]
     Route: 048
     Dates: start: 20100416, end: 20100419
  7. PREDONINE [Suspect]
     Dosage: EVERY OTHER DAY 20 MG AND 10 MG
     Route: 048
     Dates: start: 20100430, end: 20100527
  8. PREDONINE [Suspect]
     Route: 048
     Dates: start: 20101021, end: 20101104
  9. TOCILIZUMAB [Suspect]
     Route: 041
     Dates: start: 20101216, end: 20110114
  10. PREDONINE [Suspect]
     Route: 048
     Dates: start: 20101008, end: 20101020
  11. PREDONINE [Suspect]
     Route: 048
     Dates: start: 20101105, end: 20101201
  12. TOCILIZUMAB [Suspect]
     Route: 041
     Dates: start: 20100826, end: 20101201
  13. PREDONINE [Suspect]
     Route: 048
     Dates: start: 20100604, end: 20100812
  14. PREDONINE [Suspect]
     Route: 048
     Dates: start: 20100409, end: 20100412
  15. PREDONINE [Suspect]
     Route: 048
     Dates: start: 20100312, end: 20100328
  16. PREDONINE [Suspect]
     Dosage: EVERY OTHER DAY 15 MG AND 5 MG
     Route: 048
     Dates: start: 20100528, end: 20100603
  17. PREDONINE [Suspect]
     Route: 048
     Dates: start: 20100813, end: 20100826
  18. TOCILIZUMAB [Suspect]
     Route: 041
     Dates: start: 20100715, end: 20100729
  19. PREDONINE [Suspect]
     Dosage: EVERY OTHER DAY 10MG AND 5MG
     Route: 048
     Dates: start: 20100827, end: 20101007
  20. PREDONINE [Suspect]
     Route: 048
     Dates: start: 20100329, end: 20100408

REACTIONS (3)
  - LYMPHOPENIA [None]
  - SPLENIC INJURY [None]
  - MALAISE [None]
